FAERS Safety Report 8525321-2 (Version None)
Quarter: 2012Q3

REPORT INFORMATION
  Report Type: 
  Country: None (occurrence: None)
  Receive Date: 20120710
  Receipt Date: 20120625
  Transmission Date: 20120928
  Serious: Yes (Life-Threatening)
  Sender: FDA-Public Use
  Company Number: TPA2012A04174

PATIENT
  Age: 79 Year
  Sex: Male

DRUGS (5)
  1. ADENURIC (FEBUXOSTAT) [Suspect]
     Indication: PRODUCT USED FOR UNKNOWN INDICATION
     Dosage: 80 MG (80 MG, 1-2) ORAL
     Route: 048
  2. NEXIUM [Concomitant]
  3. KETOPROFEN [Concomitant]
  4. ACETAMINOPHEN [Concomitant]
  5. OLMESARTAN MEDOXOMIL [Suspect]
     Indication: HYPERTENSION
     Dosage: 20/5 MG (1 IN 1) ORAL
     Route: 048
     Dates: start: 20100101

REACTIONS (3)
  - FLUID OVERLOAD [None]
  - INTERSTITIAL LUNG DISEASE [None]
  - ACUTE RESPIRATORY DISTRESS SYNDROME [None]
